FAERS Safety Report 23587905 (Version 1)
Quarter: 2024Q1

REPORT INFORMATION
  Report Type: Spontaneous
  Country: US (occurrence: US)
  Receive Date: 20240301
  Receipt Date: 20240301
  Transmission Date: 20240409
  Serious: Yes (Hospitalization)
  Sender: FDA-Public Use
  Company Number: US-FMCRTG-FMC-2402-000207

PATIENT
  Age: 55 Year
  Sex: Female

DRUGS (17)
  1. DELFLEX WITH DEXTROSE 1.5% LOW MAGNESIUM LOW CALCIUM [Suspect]
     Active Substance: CALCIUM CHLORIDE\DEXTROSE\MAGNESIUM CHLORIDE\SODIUM CHLORIDE\SODIUM LACTATE
     Indication: End stage renal disease
     Dosage: 7X WEEK, EDW 75.1 (KG) CA 2.5 (MEQ/L) MG 0.5 (MEQ/L), # EXCHANGES 5, FILL VOL 1800 ML, LAST FILL VOL
     Route: 033
  2. DELFLEX WITH DEXTROSE 2.5% LOW MAGNESIUM LOW CALCIUM [Suspect]
     Active Substance: CALCIUM CHLORIDE\DEXTROSE\MAGNESIUM CHLORIDE\SODIUM CHLORIDE\SODIUM LACTATE
     Indication: End stage renal disease
     Dosage: 7X WEEK, EDW 75.1 (KG) CA 2.5 (MEQ/L) MG 0.5 (MEQ/L),# EXCHANGES 5, FILL VOL 1800 ML, LAST FILL VOL
     Route: 033
  3. DELFLEX WITH DEXTROSE 4.25% LOW MAGNESIUM LOW CALCIUM [Suspect]
     Active Substance: CALCIUM CHLORIDE\DEXTROSE\MAGNESIUM CHLORIDE\SODIUM CHLORIDE\SODIUM LACTATE
     Indication: End stage renal disease
     Dosage: 7X WEEK, EDW 75.1 (KG) CA 2.5 (MEQ/L) MG 0.5 (MEQ/L),# EXCHANGES 5, FILL VOL 1800 ML, LAST FILL VOL
     Route: 033
  4. ASPIRIN [Concomitant]
     Active Substance: ASPIRIN
     Dosage: 1 TABLET
     Route: 048
  5. CARVEDILOL [Concomitant]
     Active Substance: CARVEDILOL
     Route: 048
  6. ATROPINE\DIPHENOXYLATE [Concomitant]
     Active Substance: ATROPINE\DIPHENOXYLATE
     Dosage: 2.5 MG-0.025 MG
     Route: 048
  7. DORZOLAMIDE [Concomitant]
     Active Substance: DORZOLAMIDE
  8. ENTRESTO [Concomitant]
     Active Substance: SACUBITRIL\VALSARTAN
     Dosage: 24 MG-26 MG TABLET
     Route: 048
  9. FLONASE ALLERGY RELIEF [Concomitant]
     Active Substance: FLUTICASONE PROPIONATE
     Dosage: SPRAY 1 SPRAY INTO BOTH NOSTRILS ONCE A DAY.
     Route: 045
  10. FUROSEMIDE [Concomitant]
     Active Substance: FUROSEMIDE
     Route: 048
  11. GABAPENTIN [Concomitant]
     Active Substance: GABAPENTIN
     Dosage: TAKE 1 CAPSULE BY MOUTH TWICE A DAY 100MG Q D AND 200MG QHS.
  12. GLIPIZIDE [Concomitant]
     Active Substance: GLIPIZIDE
     Dosage: TAKE 1 TABLET BY MOUTH TWICE A DAY BEFORE MEALS
     Route: 048
  13. HYDROCODONE [Concomitant]
     Active Substance: HYDROCODONE
     Dosage: TAKE EVERY EIGHT HOURS AS NEEDED FOR PAIN TAKE 1 OR 2 TABS
     Route: 048
  14. LIDOCAINE AND PRILOCAINE [Concomitant]
     Active Substance: LIDOCAINE\PRILOCAINE
     Dosage: 2.5 %-2.5 % TOPICAL CREAM. APPLY A SMALL AMOUNT TO SKIN THREE TIMES A WEEK AS DIRECTED APPLY TO ACCE
  15. LACTULOSE [Concomitant]
     Active Substance: LACTULOSE
     Dosage: TAKE 30 ML BY MOUTH ONCE A DAY AS NEEDED TAKE 1 -2 TABLESPOONS DAILY AS?NEEDED FOR CONSTIPATION/CALL
  16. MELATONIN [Concomitant]
     Active Substance: MELATONIN
     Dosage: TAKE 1 TABLET BY MOUTH AT BEDTIME.
  17. WARFARIN [Concomitant]
     Active Substance: WARFARIN
     Dosage: TAKE 1 TABLET BY MOUTH ONCE A DAY AS DIRECTED PT IS TO ALTERNATE BETWEEN?1MG ET 2MG EVERY DAY.

REACTIONS (1)
  - Pleural effusion [Unknown]

NARRATIVE: CASE EVENT DATE: 20240220
